FAERS Safety Report 18126603 (Version 1)
Quarter: 2020Q3

REPORT INFORMATION
  Report Type: Spontaneous
  Country: US (occurrence: US)
  Receive Date: 20200809
  Receipt Date: 20200809
  Transmission Date: 20201103
  Serious: No
  Sender: FDA-Public Use
  Company Number: US-GLAXOSMITHKLINE-US2020148759

PATIENT
  Sex: Male

DRUGS (2)
  1. ALBUTEROL SULFATE. [Concomitant]
     Active Substance: ALBUTEROL SULFATE
     Indication: PROPHYLAXIS AGAINST BRONCHOSPASM
     Dosage: UNK
     Route: 065
  2. ANORO ELLIPTA [Suspect]
     Active Substance: UMECLIDINIUM BROMIDE\VILANTEROL TRIFENATATE
     Indication: CHRONIC OBSTRUCTIVE PULMONARY DISEASE
     Dosage: 1 PUFF(S), QD
     Route: 055
     Dates: start: 202007

REACTIONS (10)
  - Throat irritation [Unknown]
  - Choking sensation [Unknown]
  - Pharyngeal swelling [Unknown]
  - Condition aggravated [Not Recovered/Not Resolved]
  - Throat clearing [Unknown]
  - Throat tightness [Unknown]
  - Saliva altered [Unknown]
  - Dysphonia [Not Recovered/Not Resolved]
  - Dysphagia [Unknown]
  - Product dose omission issue [Unknown]
